FAERS Safety Report 8212949-2 (Version None)
Quarter: 2012Q1

REPORT INFORMATION
  Report Type: 
  Country: None (occurrence: None)
  Receive Date: 20120315
  Receipt Date: 20120305
  Transmission Date: 20120608
  Serious: Yes (Other)
  Sender: FDA-Public Use
  Company Number: US-JNJFOC-20120302603

PATIENT
  Sex: Female

DRUGS (1)
  1. REMICADE [Suspect]
     Indication: PSORIATIC ARTHROPATHY
     Dosage: FOR ABOUT 9 MONTHS OR SO
     Route: 042

REACTIONS (2)
  - AUTOIMMUNE HEPATITIS [None]
  - HEPATIC FAILURE [None]
